FAERS Safety Report 6356950-2 (Version None)
Quarter: 2009Q3

REPORT INFORMATION
  Report Type: 
  Country: None (occurrence: None)
  Receive Date: 20090915
  Receipt Date: 20090901
  Transmission Date: 20100115
  Serious: Yes (Other)
  Sender: FDA-Public Use
  Company Number: US-ROCHE-639932

PATIENT
  Sex: Female

DRUGS (6)
  1. PEG-INTERFERON A-2A (RO 25-8310) [Suspect]
     Indication: HEPATITIS C
     Dosage: GENOTYPE 1A OR 1B, WEEK 41 OF TREATMENT; PREFILLED SYRINGE
     Route: 065
     Dates: start: 20081121
  2. PEG-INTERFERON A-2A (RO 25-8310) [Suspect]
     Route: 065
  3. PEG-INTERFERON A-2A (RO 25-8310) [Suspect]
     Dosage: DOSE REDUCED
     Route: 065
  4. PEG-INTERFERON A-2A (RO 25-8310) [Suspect]
     Dosage: WEEK 41 OF TREATMENT
     Route: 065
  5. RIBASPHERE [Suspect]
     Indication: HEPATITIS C
     Dosage: GENOTYPE 1A OR 1B, WEEK 41 OF TREATMENT
     Route: 065
     Dates: start: 20081121
  6. RIBAVIRIN (NON-ROCHE) [Suspect]
     Indication: HEPATITIS C
     Dosage: DIVIDED DOSES; WEEK 41 OF TREATMENT
     Route: 065

REACTIONS (9)
  - ANAEMIA [None]
  - ARTHRITIS [None]
  - BACK PAIN [None]
  - BENIGN BREAST NEOPLASM [None]
  - BREAST MASS [None]
  - NAUSEA [None]
  - RASH [None]
  - WEIGHT DECREASED [None]
  - WHITE BLOOD CELL COUNT DECREASED [None]
